FAERS Safety Report 19603558 (Version 1)
Quarter: 2021Q3

REPORT INFORMATION
  Report Type: Spontaneous
  Country: US (occurrence: US)
  Receive Date: 20210723
  Receipt Date: 20210723
  Transmission Date: 20211014
  Serious: No
  Sender: FDA-Public Use
  Company Number: US-ASTRAZENECA-2021A630521

PATIENT
  Age: 29969 Day
  Sex: Male

DRUGS (6)
  1. REGULAR VITAMIN [Concomitant]
  2. METFORMIN [Concomitant]
     Active Substance: METFORMIN HYDROCHLORIDE
  3. CALCIUM AND MAGNESIUM SUPPLEMENTS [Concomitant]
  4. FISH OIL [Concomitant]
     Active Substance: FISH OIL
  5. FLAXSEED [Concomitant]
     Active Substance: FLAX SEED
  6. FARXIGA [Suspect]
     Active Substance: DAPAGLIFLOZIN PROPANEDIOL
     Indication: TYPE 2 DIABETES MELLITUS
     Route: 048
     Dates: start: 20210626

REACTIONS (1)
  - Diabetes mellitus inadequate control [Not Recovered/Not Resolved]

NARRATIVE: CASE EVENT DATE: 20210626
